FAERS Safety Report 10618748 (Version 4)
Quarter: 2019Q3

REPORT INFORMATION
  Report Type: Spontaneous
  Country: US (occurrence: US)
  Receive Date: 20141202
  Receipt Date: 20190923
  Transmission Date: 20191004
  Serious: Yes (Hospitalization, Other)
  Sender: FDA-Public Use
  Company Number: US-PFIZER INC-2014326676

PATIENT
  Age: 51 Year
  Sex: Female
  Weight: 59 kg

DRUGS (3)
  1. LORAZEPAM. [Concomitant]
     Active Substance: LORAZEPAM
     Dosage: UNK
  2. PEPCID AC [Concomitant]
     Active Substance: FAMOTIDINE
     Dosage: UNK
  3. DUAVEE [Suspect]
     Active Substance: BAZEDOXIFENE ACETATE\ESTROGENS, CONJUGATED
     Indication: MENOPAUSAL DISORDER
     Dosage: 1 DF, SINGLE (20 MG/0.45 MG, ONE TIME)
     Route: 048
     Dates: start: 20141117, end: 20141117

REACTIONS (19)
  - Anaphylactic reaction [Unknown]
  - Burning sensation [Unknown]
  - Stomatitis [Unknown]
  - Pruritus [Unknown]
  - Somnolence [Unknown]
  - Weight decreased [Unknown]
  - Skin lesion [Unknown]
  - Chemical burn [Not Recovered/Not Resolved]
  - Pain [Unknown]
  - Histamine level increased [Unknown]
  - Eczema [Unknown]
  - Facial neuralgia [Not Recovered/Not Resolved]
  - Migraine [Not Recovered/Not Resolved]
  - Psoriasis [Unknown]
  - Rash [Unknown]
  - Depressed mood [Unknown]
  - Oral mucosal erythema [Not Recovered/Not Resolved]
  - Nervous system disorder [Not Recovered/Not Resolved]
  - Glossitis [Unknown]

NARRATIVE: CASE EVENT DATE: 20141117
